FAERS Safety Report 9068944 (Version 1)
Quarter: 2013Q1

REPORT INFORMATION
  Report Type: Spontaneous
  Country: DE (occurrence: DE)
  Receive Date: 20130215
  Receipt Date: 20130215
  Transmission Date: 20140127
  Serious: Yes (Other)
  Sender: FDA-Public Use
  Company Number: DE-UCBSA-078199

PATIENT
  Age: 18 Month
  Sex: Female
  Weight: 11 kg

DRUGS (2)
  1. KEPPRA [Suspect]
     Dosage: TOTAL AMOUNT: 1000 MG,CHEWED
     Route: 048
     Dates: start: 20130208
  2. ETHINYLESTRADIOL [Suspect]
     Dosage: 1 TABLET CHEWED
     Route: 048
     Dates: start: 20130208

REACTIONS (1)
  - Accidental exposure to product by child [Unknown]
